FAERS Safety Report 7486309-6 (Version None)
Quarter: 2011Q2

REPORT INFORMATION
  Report Type: 
  Country: None (occurrence: None)
  Receive Date: 20110517
  Receipt Date: 20110513
  Transmission Date: 20111010
  Serious: Yes (Hospitalization, Other)
  Sender: FDA-Public Use
  Company Number: BR-PFIZER INC-2009304349

PATIENT
  Age: 40 Year
  Sex: Female
  Weight: 57 kg

DRUGS (11)
  1. LOSARTAN [Concomitant]
     Indication: HYPERTENSION
     Dosage: 50 MG, UNK
  2. VARENICLINE TARTRATE [Suspect]
     Dosage: UNK
     Dates: start: 20110413, end: 20110101
  3. VARENICLINE TARTRATE [Suspect]
     Dosage: 0.5 MG, 2X/DAY
     Dates: start: 20090101, end: 20090101
  4. COMBIRON FOLIC [Concomitant]
     Dosage: UNK
  5. VITAMIN B-12 [Concomitant]
     Dosage: UNK
  6. VARENICLINE TARTRATE [Suspect]
     Dosage: 1 MG, 2X/DAY (EVERY 12 HOURS)
     Dates: start: 20110101, end: 20110503
  7. VENLAFAXINE HCL [Suspect]
     Indication: DEPRESSION
     Dosage: 150 MG, UNK
  8. CRANBERRY [Concomitant]
     Indication: URINARY TRACT INFECTION
     Dosage: UNK
  9. VARENICLINE TARTRATE [Suspect]
     Indication: TOBACCO USER
     Dosage: 0.5 MG, 1X/DAY
     Route: 048
     Dates: start: 20091127, end: 20090101
  10. VARENICLINE TARTRATE [Suspect]
     Dosage: 1 MG, 2X/DAY
     Route: 048
     Dates: start: 20090101, end: 20110503
  11. HYDROCHLOROTHIAZIDE [Concomitant]
     Indication: HYPERTENSION
     Dosage: 25 MG, UNK

REACTIONS (3)
  - CEREBELLAR ATAXIA [None]
  - DRUG INTERACTION [None]
  - VIRAL INFECTION [None]
